FAERS Safety Report 20120165 (Version 1)
Quarter: 2021Q4

REPORT INFORMATION
  Report Type: Spontaneous
  Country: HR (occurrence: HR)
  Receive Date: 20211126
  Receipt Date: 20211126
  Transmission Date: 20220303
  Serious: Yes (Hospitalization)
  Sender: FDA-Public Use
  Company Number: None

PATIENT
  Age: 20 Year
  Sex: Female
  Weight: 72 kg

DRUGS (1)
  1. CLINDAMYCIN [Suspect]
     Active Substance: CLINDAMYCIN
     Indication: Tooth infection
     Dosage: 300 MG, Q6H
     Route: 048
     Dates: start: 20211104, end: 20211106

REACTIONS (6)
  - Oesophagitis [Recovering/Resolving]
  - Dysphagia [Not Recovered/Not Resolved]
  - Chest pain [Recovering/Resolving]
  - Oropharyngeal pain [Not Recovered/Not Resolved]
  - Vomiting [Recovering/Resolving]
  - Nausea [Recovering/Resolving]

NARRATIVE: CASE EVENT DATE: 20211104
